FAERS Safety Report 21521190 (Version 1)
Quarter: 2022Q4

REPORT INFORMATION
  Report Type: Spontaneous
  Country: JP (occurrence: None)
  Receive Date: 20221028
  Receipt Date: 20221028
  Transmission Date: 20230113
  Serious: Yes (Hospitalization)
  Sender: FDA-Public Use
  Company Number: 2022A048698

PATIENT
  Age: 22353 Day
  Sex: Female

DRUGS (7)
  1. NEXIUM [Suspect]
     Active Substance: ESOMEPRAZOLE MAGNESIUM
     Indication: Gastrooesophageal reflux disease
     Dosage: IN THE MORNING
     Route: 048
     Dates: start: 20201023, end: 20201113
  2. ADETPHOS [Suspect]
     Active Substance: ADENOSINE TRIPHOSPHATE
     Indication: Vertigo labyrinthine
     Dosage: IN THE MORNING, AFTERNOON, AND EVENING
     Route: 048
     Dates: start: 20201022, end: 20201028
  3. HERBALS [Suspect]
     Active Substance: HERBALS
     Indication: Gastrooesophageal reflux disease
     Dosage: IN THE MORNING AND EVENING
     Route: 048
     Dates: start: 20201030, end: 20201113
  4. NAUZELIN [Suspect]
     Active Substance: DOMPERIDONE
     Indication: Vertigo labyrinthine
     Dosage: IN THE MORNING, AFTERNOON, AND EVENING
     Route: 048
     Dates: start: 20201022, end: 20201028
  5. DIPHENIDOL HYDROCHLORIDE [Suspect]
     Active Substance: DIPHENIDOL HYDROCHLORIDE
     Indication: Vertigo labyrinthine
     Dosage: IN THE MORNING, AFTERNOON, AND EVENING
     Route: 048
     Dates: start: 20201022, end: 20201028
  6. MEYLON [Concomitant]
     Active Substance: SODIUM BICARBONATE
     Indication: Vertigo labyrinthine
     Route: 042
     Dates: start: 20201023, end: 20201024
  7. CALCIUM CHLORIDE\MAGNESIUM CHLORIDE\POTASSIUM CHLORIDE\SODIUM ACETATE\ [Concomitant]
     Active Substance: CALCIUM CHLORIDE\MAGNESIUM CHLORIDE\POTASSIUM CHLORIDE\SODIUM ACETATE\SODIUM CHLORIDE
     Indication: Dehydration
     Route: 041
     Dates: start: 20201023, end: 20201023

REACTIONS (2)
  - Drug-induced liver injury [Recovering/Resolving]
  - Drug ineffective [Unknown]

NARRATIVE: CASE EVENT DATE: 20201113
